FAERS Safety Report 6968940-7 (Version None)
Quarter: 2010Q3

REPORT INFORMATION
  Report Type: 
  Country: None (occurrence: None)
  Receive Date: 20100907
  Receipt Date: 20100827
  Transmission Date: 20110219
  Serious: Yes (Death, Other)
  Sender: FDA-Public Use
  Company Number: IE-NAPPMUNDI-GBR-2010-0006950

PATIENT
  Sex: Female

DRUGS (11)
  1. OXYNORM LIQUID CONCENTRATE 10 MG/ML [Suspect]
     Indication: PAIN
     Dosage: 2.5 ML
     Route: 048
     Dates: start: 20100813, end: 20100813
  2. OXYNORM LIQUID CONCENTRATE 10 MG/ML [Suspect]
     Dosage: 2.5 ML
     Route: 048
     Dates: start: 20100811, end: 20100811
  3. OXYCONTIN [Suspect]
     Indication: PAIN
     Dosage: 10 MG, DAILY
     Route: 048
     Dates: start: 20100811, end: 20100811
  4. OXYCONTIN [Suspect]
     Dosage: 20 MG, DAILY
     Route: 048
     Dates: start: 20100810, end: 20100811
  5. LEXAPRO [Concomitant]
     Dosage: 10 MG, UNK
     Route: 048
  6. NEXIUM [Concomitant]
     Dosage: 10 MG, UNK
     Route: 048
  7. DEXAMETHASONE [Concomitant]
     Route: 048
  8. DOMPERIDONE [Concomitant]
     Dosage: 30 MG, UNK
     Route: 048
  9. LACTULOSE [Concomitant]
     Dosage: 30 ML, UNK
     Route: 048
  10. MEGACE [Concomitant]
     Dosage: 400 MG, UNK
     Route: 048
  11. PANTOPRAZOLE [Suspect]
     Dosage: UNK

REACTIONS (4)
  - ACCIDENTAL OVERDOSE [None]
  - DEPRESSED LEVEL OF CONSCIOUSNESS [None]
  - DRUG ADMINISTRATION ERROR [None]
  - SOMNOLENCE [None]
